FAERS Safety Report 25221063 (Version 1)
Quarter: 2025Q2

REPORT INFORMATION
  Report Type: Other
  Country: US (occurrence: US)
  Receive Date: 20250421
  Receipt Date: 20250421
  Transmission Date: 20250716
  Serious: Yes (Other)
  Sender: NEUROCRINE BIOSCIENCES
  Company Number: US-NEUROCRINE BIOSCIENCES INC.-2025NBI02663

PATIENT
  Age: 66 Year
  Sex: Female

DRUGS (22)
  1. INGREZZA [Suspect]
     Active Substance: VALBENAZINE DITOSYLATE
     Indication: Tardive dyskinesia
     Route: 048
     Dates: start: 20250129, end: 20250205
  2. ROSUVASTATIN [Concomitant]
     Active Substance: ROSUVASTATIN
  3. AZITHROMYCIN [Concomitant]
     Active Substance: AZITHROMYCIN
  4. BETHANECHOL [Concomitant]
     Active Substance: BETHANECHOL
  5. BUPROPION HYDROCHLORIDE [Concomitant]
     Active Substance: BUPROPION HYDROCHLORIDE
  6. DEPAKOTE [Concomitant]
     Active Substance: DIVALPROEX SODIUM
  7. DOCUSATE [Concomitant]
     Active Substance: DOCUSATE
  8. LEVOTHYROXINE [Concomitant]
     Active Substance: LEVOTHYROXINE
  9. LISINOPRIL [Concomitant]
     Active Substance: LISINOPRIL
  10. NIFEDIPINE [Concomitant]
     Active Substance: NIFEDIPINE
  11. OMEPRAZOLE [Concomitant]
     Active Substance: OMEPRAZOLE
  12. OXYCODONE [Concomitant]
     Active Substance: OXYCODONE
  13. OXYCONTIN [Concomitant]
     Active Substance: OXYCODONE HYDROCHLORIDE
  14. OZEMPIC [Concomitant]
     Active Substance: SEMAGLUTIDE
  15. PAROXETINE [Concomitant]
     Active Substance: PAROXETINE
  16. MIRALAX [Concomitant]
     Active Substance: POLYETHYLENE GLYCOL 3350
  17. POTASSIUM CHLORIDE [Concomitant]
     Active Substance: POTASSIUM CHLORIDE
  18. PROPRANOLOL [Concomitant]
     Active Substance: PROPRANOLOL HYDROCHLORIDE
  19. TIZANIDINE [Concomitant]
     Active Substance: TIZANIDINE
  20. TRESIBA [Concomitant]
     Active Substance: INSULIN DEGLUDEC
  21. VITAMIN D3 [Concomitant]
     Active Substance: CHOLECALCIFEROL
  22. ZIPRASIDONE [Concomitant]
     Active Substance: ZIPRASIDONE

REACTIONS (5)
  - Hallucinations, mixed [Recovered/Resolved]
  - Nausea [Recovered/Resolved]
  - Headache [Recovered/Resolved]
  - Dizziness [Recovered/Resolved]
  - Fall [Recovered/Resolved]
